FAERS Safety Report 7500214-8 (Version None)
Quarter: 2011Q2

REPORT INFORMATION
  Report Type: 
  Country: None (occurrence: None)
  Receive Date: 20110524
  Receipt Date: 20110402
  Transmission Date: 20111010
  Serious: No
  Sender: FDA-Public Use
  Company Number: US-NOVEN-11US002188

PATIENT
  Sex: Female
  Weight: 57.143 kg

DRUGS (6)
  1. DAYTRANA [Suspect]
     Indication: ATTENTION DEFICIT/HYPERACTIVITY DISORDER
     Dosage: 20 MG, QD
     Route: 062
     Dates: start: 20110101
  2. FOLIC ACID [Concomitant]
     Indication: COAGULOPATHY
     Dosage: 1 MG, QD
     Route: 048
     Dates: start: 20110101
  3. CELEXA [Concomitant]
     Indication: AFFECT LABILITY
     Dosage: 15 MG, QD
     Route: 048
     Dates: start: 20100201
  4. ABILIFY [Concomitant]
     Indication: AFFECT LABILITY
     Dosage: 20 MG, QD
     Route: 048
     Dates: start: 20100201
  5. TRAZODONE HCL [Concomitant]
     Indication: SLEEP DISORDER
     Dosage: 25 MG, QD
     Route: 048
     Dates: start: 20100201
  6. DAYTRANA [Suspect]
     Dosage: 20 MG, QD
     Route: 062
     Dates: start: 20110101

REACTIONS (3)
  - WRONG TECHNIQUE IN DRUG USAGE PROCESS [None]
  - NO ADVERSE EVENT [None]
  - PRODUCT QUALITY ISSUE [None]
